FAERS Safety Report 8603508-8 (Version None)
Quarter: 2012Q3

REPORT INFORMATION
  Report Type: 
  Country: None (occurrence: None)
  Receive Date: 20120817
  Receipt Date: 20120813
  Transmission Date: 20120928
  Serious: Yes (Hospitalization, Disabling, Other)
  Sender: FDA-Public Use
  Company Number: US-ALLERGAN-1210238US

PATIENT
  Age: 93 Year
  Sex: Female

DRUGS (8)
  1. BOTULINUM TOXIN TYPE A [Suspect]
     Indication: TORTICOLLIS
     Dosage: 100 UNITS, SINGLE
     Route: 030
     Dates: start: 20090604, end: 20090604
  2. BOTULINUM TOXIN TYPE A [Suspect]
     Indication: DYSTONIA
     Dosage: 275 UNITS, SINGLE
     Route: 030
     Dates: start: 20090916, end: 20090916
  3. BOTULINUM TOXIN TYPE A [Suspect]
     Indication: DROOLING
     Dosage: 370 UNITS, SINGLE
     Route: 030
     Dates: start: 20091217, end: 20091217
  4. TOPROL-XL [Concomitant]
     Indication: HYPERTENSION
  5. BOTULINUM TOXIN TYPE A [Suspect]
     Dosage: 200 UNITS, SINGLE
     Route: 030
     Dates: start: 20090730, end: 20090730
  6. PLAVIX [Concomitant]
     Indication: CAROTID ARTERY STENOSIS
     Dosage: UNK
     Dates: start: 20060101
  7. BOTULINUM TOXIN TYPE A [Suspect]
     Indication: MUSCLE SPASTICITY
  8. ZOCOR [Concomitant]

REACTIONS (5)
  - NEUROMYOPATHY [None]
  - ATRIAL FIBRILLATION [None]
  - PNEUMONIA [None]
  - DYSPHAGIA [None]
  - RESPIRATORY FAILURE [None]
